FAERS Safety Report 5875887-6 (Version None)
Quarter: 2008Q3

REPORT INFORMATION
  Report Type: 
  Country: None (occurrence: None)
  Receive Date: 20080905
  Receipt Date: 20080825
  Transmission Date: 20090109
  Serious: Yes (Hospitalization)
  Sender: FDA-Public Use
  Company Number: SPV1-2008-01865

PATIENT
  Age: 27 Year
  Sex: Male
  Weight: 24 kg

DRUGS (1)
  1. ELAPRASE [Suspect]
     Indication: MUCOPOLYSACCHARIDOSIS II
     Dosage: 0.5 MG/KG,  IV DRIP
     Route: 041
     Dates: start: 20070522

REACTIONS (5)
  - MOVEMENT DISORDER [None]
  - MYALGIA [None]
  - NASOPHARYNGITIS [None]
  - NO THERAPEUTIC RESPONSE [None]
  - PNEUMONIA [None]
